FAERS Safety Report 16259973 (Version 1)
Quarter: 2019Q2

REPORT INFORMATION
  Report Type: Spontaneous
  Country: NL (occurrence: NL)
  Receive Date: 20190501
  Receipt Date: 20190501
  Transmission Date: 20190711
  Serious: Yes (Other)
  Sender: FDA-Public Use
  Company Number: NL-MYLANLABS-2019M1040856

PATIENT
  Age: 41 Year
  Sex: Male
  Weight: 63 kg

DRUGS (6)
  1. OMEPRAZOLE. [Concomitant]
     Active Substance: OMEPRAZOLE
     Dosage: 40 MILLIGRAM, QD
     Route: 048
  2. FERROUS SULFATE. [Concomitant]
     Active Substance: FERROUS SULFATE
     Dosage: 105 MG, QD
     Route: 048
  3. ZOPICLON [Concomitant]
     Active Substance: ZOPICLONE
     Dosage: 7.5 MG, UNK
     Route: 048
  4. OLANZAPINE. [Suspect]
     Active Substance: OLANZAPINE
     Indication: PRODUCT USED FOR UNKNOWN INDICATION
     Dosage: 5 MILLIGRAM, QD
     Route: 048
  5. ZYPADHERA [Suspect]
     Active Substance: OLANZAPINE PAMOATE
     Indication: PSYCHOTIC DISORDER
     Dosage: 405 MG, 2/M
     Route: 030
     Dates: start: 201202
  6. COLECALCIFEROL [Concomitant]
     Active Substance: CHOLECALCIFEROL
     Dosage: 800 IU, QD
     Route: 048

REACTIONS (8)
  - Overdose [Recovered/Resolved]
  - Sedation [Recovered/Resolved]
  - Dizziness [Recovered/Resolved]
  - Delirium [Recovered/Resolved]
  - Abnormal behaviour [Recovered/Resolved]
  - Asocial behaviour [Recovered/Resolved]
  - Gait disturbance [Recovered/Resolved]
  - Restlessness [Recovered/Resolved]

NARRATIVE: CASE EVENT DATE: 20161229
